FAERS Safety Report 9392627 (Version 1)
Quarter: 2013Q3

REPORT INFORMATION
  Report Type: Spontaneous
  Country: US (occurrence: None)
  Receive Date: 20130708
  Receipt Date: 20130708
  Transmission Date: 20140515
  Serious: Yes (Other)
  Sender: FDA-Public Use
  Company Number: None

PATIENT
  Age: 37 Year
  Sex: Female
  Weight: 61.24 kg

DRUGS (1)
  1. PARAGARD [Suspect]
     Indication: CONTRACEPTION
     Dates: start: 20121230, end: 20130629

REACTIONS (6)
  - Pain in extremity [None]
  - Musculoskeletal stiffness [None]
  - Affective disorder [None]
  - Panic attack [None]
  - Stress [None]
  - Anxiety [None]
